FAERS Safety Report 4459328-1 (Version None)
Quarter: 2004Q3

REPORT INFORMATION
  Report Type: 
  Country: None (occurrence: None)
  Receive Date: 20040927
  Receipt Date: 20020516
  Transmission Date: 20050211
  Serious: Yes (Hospitalization, Other)
  Sender: FDA-Public Use
  Company Number: US-MERCK-0205USA02187

PATIENT
  Age: 80 Year
  Sex: Female
  Weight: 80 kg

DRUGS (1)
  1. VIOXX [Suspect]
     Route: 048
     Dates: start: 20000623

REACTIONS (29)
  - ABDOMINAL PAIN [None]
  - ACUTE CORONARY SYNDROME [None]
  - ANGINA UNSTABLE [None]
  - BRONCHITIS [None]
  - CARDIAC FAILURE CONGESTIVE [None]
  - CHEST PAIN [None]
  - CHRONIC OBSTRUCTIVE AIRWAYS DISEASE [None]
  - CONSTIPATION [None]
  - DIVERTICULITIS [None]
  - DRUG HYPERSENSITIVITY [None]
  - EMOTIONAL DISTRESS [None]
  - FATIGUE [None]
  - GASTROINTESTINAL DISORDER [None]
  - GASTROOESOPHAGEAL REFLUX DISEASE [None]
  - HAEMORRHAGIC DISORDER [None]
  - HYPERSENSITIVITY [None]
  - ILEUS PARALYTIC [None]
  - LIMB INJURY [None]
  - LUMBAR RADICULOPATHY [None]
  - LUMBAR VERTEBRAL FRACTURE [None]
  - PARAESTHESIA [None]
  - PULMONARY HYPERTENSION [None]
  - RESTLESS LEGS SYNDROME [None]
  - SKIN LACERATION [None]
  - SPINAL COMPRESSION FRACTURE [None]
  - THROMBOCYTOPENIA [None]
  - TRANSIENT ISCHAEMIC ATTACK [None]
  - UPPER RESPIRATORY TRACT INFECTION [None]
  - URINARY INCONTINENCE [None]
